FAERS Safety Report 17985336 (Version 2)
Quarter: 2020Q3

REPORT INFORMATION
  Report Type: Spontaneous
  Country: FR (occurrence: FR)
  Receive Date: 20200706
  Receipt Date: 20200714
  Transmission Date: 20201103
  Serious: Yes (Other)
  Sender: FDA-Public Use
  Company Number: FR-MYLANLABS-2020M1061131

PATIENT
  Sex: Male

DRUGS (13)
  1. TRAMADOL. [Suspect]
     Active Substance: TRAMADOL
     Indication: SCOLIOSIS
  2. SKENAN [Suspect]
     Active Substance: MORPHINE SULFATE
     Indication: SCOLIOSIS
  3. SKENAN [Suspect]
     Active Substance: MORPHINE SULFATE
     Indication: PRODUCT USED FOR UNKNOWN INDICATION
     Dosage: UNK
     Route: 042
     Dates: start: 202006, end: 202006
  4. SUBUTEX [Concomitant]
     Active Substance: BUPRENORPHINE HYDROCHLORIDE
     Indication: PRODUCT USED FOR UNKNOWN INDICATION
     Dosage: UNK
     Route: 042
  5. TRAMADOL. [Suspect]
     Active Substance: TRAMADOL
     Indication: BACK PAIN
  6. TRAMADOL. [Suspect]
     Active Substance: TRAMADOL
     Indication: PRODUCT SUBSTITUTION
     Dosage: IMMEDIATE RELEASE
  7. SKENAN [Suspect]
     Active Substance: MORPHINE SULFATE
     Indication: KYPHOSIS
     Dosage: UNK
     Route: 045
  8. SKENAN [Suspect]
     Active Substance: MORPHINE SULFATE
     Indication: KYPHOSIS
     Dosage: UNK
     Route: 042
  9. SKENAN [Suspect]
     Active Substance: MORPHINE SULFATE
     Indication: KYPHOSIS
     Dosage: UNK
     Route: 048
  10. ACTISKENAN [Suspect]
     Active Substance: MORPHINE SULFATE
     Indication: PRODUCT USED FOR UNKNOWN INDICATION
     Dosage: 140 MILLIGRAM, TOTAL
     Route: 042
     Dates: start: 202006, end: 202006
  11. TRAMADOL. [Suspect]
     Active Substance: TRAMADOL
     Indication: KYPHOSIS
  12. SKENAN [Suspect]
     Active Substance: MORPHINE SULFATE
     Indication: SCOLIOSIS
  13. SKENAN [Suspect]
     Active Substance: MORPHINE SULFATE
     Indication: SCOLIOSIS

REACTIONS (21)
  - Feeling of relaxation [Unknown]
  - Pruritus [Unknown]
  - Burning sensation [Recovered/Resolved]
  - Tachycardia [Unknown]
  - Intentional product use issue [Unknown]
  - Erythema [Recovered/Resolved]
  - Vision blurred [Recovered/Resolved]
  - Anxiety [Recovered/Resolved]
  - Drug abuse [Unknown]
  - Drug diversion [Unknown]
  - Intentional product misuse [Unknown]
  - Product use in unapproved indication [Unknown]
  - Dyspnoea [Recovered/Resolved]
  - Daydreaming [Recovered/Resolved]
  - Heart rate increased [Recovered/Resolved]
  - Drug tolerance increased [Unknown]
  - Overdose [Recovered/Resolved]
  - Feeling hot [Recovered/Resolved]
  - Fear of death [Recovered/Resolved]
  - Sedation [Unknown]
  - Somnolence [Unknown]

NARRATIVE: CASE EVENT DATE: 202006
